FAERS Safety Report 19708654 (Version 1)
Quarter: 2021Q3

REPORT INFORMATION
  Report Type: Spontaneous
  Country: US (occurrence: US)
  Receive Date: 20210816
  Receipt Date: 20210816
  Transmission Date: 20211014
  Serious: Yes (Other)
  Sender: FDA-Public Use
  Company Number: US-ALKERMES INC.-ALK-2021-004152

PATIENT
  Age: 34 Year
  Sex: Male
  Weight: 108.84 kg

DRUGS (3)
  1. ATENOLOL. [Concomitant]
     Active Substance: ATENOLOL
     Indication: HYPERTENSION
     Dosage: UNK
     Route: 065
  2. VIVITROL [Suspect]
     Active Substance: NALTREXONE
     Indication: ALCOHOLISM
     Dosage: 380 MILLIGRAM, QMO
     Route: 030
     Dates: start: 20210809
  3. NALTREXONE [Concomitant]
     Active Substance: NALTREXONE
     Indication: ALCOHOLISM
     Route: 048

REACTIONS (12)
  - Seizure like phenomena [Unknown]
  - Blood pressure decreased [Unknown]
  - Bradycardia [Unknown]
  - Eye movement disorder [Unknown]
  - Presyncope [Unknown]
  - Nausea [Unknown]
  - Cold sweat [Unknown]
  - Loss of consciousness [Unknown]
  - Chest pain [Unknown]
  - Unresponsive to stimuli [Unknown]
  - Chest discomfort [Unknown]
  - Hyperhidrosis [Unknown]

NARRATIVE: CASE EVENT DATE: 20210809
